FAERS Safety Report 6355112-2 (Version None)
Quarter: 2009Q3

REPORT INFORMATION
  Report Type: 
  Country: None (occurrence: None)
  Receive Date: 20090909
  Receipt Date: 20090909
  Transmission Date: 20100115
  Serious: Yes (Other)
  Sender: FDA-Public Use
  Company Number: 220002K09DEU

PATIENT
  Age: 9 Year
  Sex: Female

DRUGS (2)
  1. SAIZEN [Suspect]
     Indication: BLOOD GROWTH HORMONE DECREASED
     Dosage: 0.6 MG, 1 IN 1 DAYS, SUBCUTANEOUS
     Route: 058
     Dates: start: 20070712, end: 20080501
  2. DESMOTABS (DESMOPRESSIN ACETATE) [Concomitant]

REACTIONS (7)
  - ADRENAL INSUFFICIENCY [None]
  - DISTURBANCE IN ATTENTION [None]
  - FATIGUE [None]
  - GERM CELL CANCER [None]
  - HYPOTHALAMO-PITUITARY DISORDER [None]
  - HYPOTHYROIDISM [None]
  - MALAISE [None]
